FAERS Safety Report 22655904 (Version 1)
Quarter: 2023Q2

REPORT INFORMATION
  Report Type: Spontaneous
  Country: US (occurrence: None)
  Receive Date: 20230629
  Receipt Date: 20230629
  Transmission Date: 20230722
  Serious: Yes (Life-Threatening, Hospitalization, Disabling, Other)
  Sender: FDA-Public Use
  Company Number: None

PATIENT
  Age: 79 Year
  Sex: Female
  Weight: 50.8 kg

DRUGS (11)
  1. AMIODARONE [Suspect]
     Active Substance: AMIODARONE
     Dosage: FREQUENCY : DAILY;?
     Route: 048
     Dates: start: 20221031, end: 20230315
  2. ADVAIR HFA [Concomitant]
     Active Substance: FLUTICASONE PROPIONATE\SALMETEROL XINAFOATE
  3. UNSPECIFIED INGREDIENT [Concomitant]
     Active Substance: UNSPECIFIED INGREDIENT
  4. PRADAXA [Concomitant]
     Active Substance: DABIGATRAN ETEXILATE MESYLATE
  5. FLUOXETINE [Concomitant]
     Active Substance: FLUOXETINE HYDROCHLORIDE
  6. METOPROLOL [Concomitant]
     Active Substance: METOPROLOL
  7. MIRTAZAPINE [Concomitant]
     Active Substance: MIRTAZAPINE
  8. PANTOPRAZOLE [Concomitant]
     Active Substance: PANTOPRAZOLE
  9. SIMVATATIN [Concomitant]
  10. THIAMINE HYDROCHLORIDE [Concomitant]
     Active Substance: THIAMINE HYDROCHLORIDE
  11. VITAMIN D3 [Concomitant]
     Active Substance: CHOLECALCIFEROL

REACTIONS (10)
  - Renal disorder [None]
  - Decreased appetite [None]
  - Vestibular nystagmus [None]
  - Diplopia [None]
  - Asthenia [None]
  - Weight decreased [None]
  - Nausea [None]
  - Amnesia [None]
  - Speech disorder [None]
  - Toxicity to various agents [None]

NARRATIVE: CASE EVENT DATE: 20230315
